FAERS Safety Report 13432579 (Version 3)
Quarter: 2017Q2

REPORT INFORMATION
  Report Type: Report from Study
  Country: DE (occurrence: DE)
  Receive Date: 20170412
  Receipt Date: 20170428
  Transmission Date: 20170830
  Serious: Yes (Hospitalization)
  Sender: FDA-Public Use
  Company Number: DE-BIOGEN-2017BI00386073

PATIENT
  Age: 27 Year
  Sex: Female
  Weight: 48 kg

DRUGS (3)
  1. TYSABRI [Suspect]
     Active Substance: NATALIZUMAB
     Indication: MULTIPLE SCLEROSIS
     Dosage: INFUSED OVER 1 HOUR
     Route: 042
     Dates: start: 20110325
  2. SPASMEX [Concomitant]
     Active Substance: TROSPIUM CHLORIDE
     Indication: BLADDER DISORDER
     Route: 048
     Dates: start: 20130913
  3. MACGROGOL [Concomitant]
     Indication: CONSTIPATION
     Route: 048
     Dates: start: 2014

REACTIONS (3)
  - Epilepsy [Recovered/Resolved]
  - Insomnia [Recovered/Resolved]
  - Prescribed underdose [Not Recovered/Not Resolved]

NARRATIVE: CASE EVENT DATE: 20170404
